FAERS Safety Report 7363343-8 (Version None)
Quarter: 2011Q1

REPORT INFORMATION
  Report Type: 
  Country: None (occurrence: None)
  Receive Date: 20110321
  Receipt Date: 20110308
  Transmission Date: 20110831
  Serious: Yes (Hospitalization, Disabling)
  Sender: FDA-Public Use
  Company Number: US-JNJFOC-20100403971

PATIENT
  Sex: Male
  Weight: 53.7 kg

DRUGS (4)
  1. HUMIRA [Concomitant]
  2. METRONIDAZOLE [Concomitant]
  3. REMICADE [Suspect]
     Indication: INFLAMMATORY BOWEL DISEASE
     Dosage: TOTAL 21 DOSES
     Route: 042
  4. PREDNISONE [Concomitant]

REACTIONS (1)
  - COLONIC STENOSIS [None]
